FAERS Safety Report 6705960-1 (Version None)
Quarter: 2010Q2

REPORT INFORMATION
  Report Type: 
  Country: None (occurrence: None)
  Receive Date: 20100503
  Receipt Date: 20090326
  Transmission Date: 20101027
  Serious: Yes (Other)
  Sender: FDA-Public Use
  Company Number: US-BAYER-200913729NA

PATIENT
  Age: 79 Year
  Sex: Female

DRUGS (3)
  1. NEXAVAR [Suspect]
     Indication: HEPATIC NEOPLASM MALIGNANT
     Dosage: TOTAL DAILY DOSE: 200 MG  UNIT DOSE: 200 MG
     Route: 048
     Dates: start: 20090326
  2. NEXAVAR [Suspect]
     Dosage: TOTAL DAILY DOSE: 400 MG  UNIT DOSE: 200 MG
     Route: 048
     Dates: start: 20090220, end: 20090325
  3. NEXAVAR [Suspect]
     Dosage: TOTAL DAILY DOSE: 800 MG  UNIT DOSE: 200 MG
     Route: 048
     Dates: start: 20090209, end: 20090219

REACTIONS (10)
  - ALOPECIA [None]
  - ASTHENIA [None]
  - COORDINATION ABNORMAL [None]
  - DYSURIA [None]
  - ERYTHEMA [None]
  - FALL [None]
  - FATIGUE [None]
  - HEADACHE [None]
  - PAIN [None]
  - RASH [None]
